FAERS Safety Report 15155813 (Version 1)
Quarter: 2018Q3

REPORT INFORMATION
  Report Type: Spontaneous
  Country: AT (occurrence: AT)
  Receive Date: 20180717
  Receipt Date: 20180717
  Transmission Date: 20181010
  Serious: Yes (Other)
  Sender: FDA-Public Use
  Company Number: AT-US WORLDMEDS, LLC-STA_00018027

PATIENT
  Age: 76 Year
  Sex: Male
  Weight: 48 kg

DRUGS (5)
  1. CETEBE [Concomitant]
     Indication: PRODUCT USED FOR UNKNOWN INDICATION
  2. SINEMET [Concomitant]
     Active Substance: CARBIDOPA\LEVODOPA
     Indication: PRODUCT USED FOR UNKNOWN INDICATION
  3. AGOPTON 30 [Concomitant]
     Indication: PRODUCT USED FOR UNKNOWN INDICATION
  4. APOMORPHINE HYDROCHLORIDE [Suspect]
     Active Substance: APOMORPHINE HYDROCHLORIDE
     Indication: PARKINSON^S DISEASE
     Route: 058
     Dates: start: 200506
  5. MOTILIUM [Concomitant]
     Active Substance: DOMPERIDONE
     Indication: PRODUCT USED FOR UNKNOWN INDICATION
     Route: 048

REACTIONS (9)
  - Application site discolouration [Not Recovered/Not Resolved]
  - Dyskinesia [Not Recovered/Not Resolved]
  - Application site inflammation [Not Recovered/Not Resolved]
  - Application site induration [Recovered/Resolved]
  - Nodule [Not Recovered/Not Resolved]
  - Application site necrosis [Recovered/Resolved]
  - Hyperkinesia [Not Recovered/Not Resolved]
  - Nausea [Recovered/Resolved]
  - Hallucination, visual [Recovered/Resolved]

NARRATIVE: CASE EVENT DATE: 20140508
